FAERS Safety Report 8734416 (Version 2)
Quarter: 2013Q1

REPORT INFORMATION
  Report Type: Spontaneous
  Country: US (occurrence: None)
  Receive Date: 20120802
  Receipt Date: 20121120
  Transmission Date: 20140127
  Serious: Yes (Other)
  Sender: FDA-Public Use
  Company Number: 1207-393

PATIENT
  Age: 91 Year
  Sex: Male

DRUGS (6)
  1. EYLEA [Suspect]
     Indication: AGE-RELATED MACULAR DEGENERATION
     Dosage: 2 MG, INTRAVITREAL
     Dates: start: 20120615, end: 20120615
  2. FINASTERIDE [Concomitant]
  3. FLUNISOLIDE 0.025% (FLUNISOLIDE) [Concomitant]
  4. LISINOPRIL (LISINOPRIL) [Concomitant]
  5. TERAZOSIN HYDROCHLORIDE [Concomitant]
  6. SIMVASTATIN [Concomitant]

REACTIONS (1)
  - Retinal haemorrhage [None]
